FAERS Safety Report 12633218 (Version 1)
Quarter: 2016Q3

REPORT INFORMATION
  Report Type: Spontaneous
  Country: US (occurrence: None)
  Receive Date: 20160808
  Receipt Date: 20160808
  Transmission Date: 20161109
  Serious: No
  Sender: FDA-Public Use
  Company Number: None

PATIENT
  Age: 47 Year
  Sex: Female
  Weight: 61.24 kg

DRUGS (6)
  1. ASPIRIN. [Concomitant]
     Active Substance: ASPIRIN
  2. BACLOFEN. [Concomitant]
     Active Substance: BACLOFEN
  3. VYVANSE [Concomitant]
     Active Substance: LISDEXAMFETAMINE DIMESYLATE
  4. VITAMIN D [Concomitant]
     Active Substance: CHOLECALCIFEROL
  5. BUPROPION HCL X, 150 MG [Suspect]
     Active Substance: BUPROPION HYDROCHLORIDE
     Indication: SMOKING CESSATION THERAPY
     Dosage: 1 TABLET(S)  IN THE MORNING TAKEN BY MOUTH
     Route: 048
     Dates: start: 20160610, end: 20160806
  6. LORATADINE. [Concomitant]
     Active Substance: LORATADINE

REACTIONS (2)
  - Alopecia [None]
  - Product substitution issue [None]

NARRATIVE: CASE EVENT DATE: 20160715
